FAERS Safety Report 24258710 (Version 1)
Quarter: 2024Q3

REPORT INFORMATION
  Report Type: Spontaneous
  Country: US (occurrence: US)
  Receive Date: 20240828
  Receipt Date: 20240828
  Transmission Date: 20241017
  Serious: No
  Sender: PFIZER
  Company Number: US-PFIZER INC-202400242944

PATIENT
  Age: 49 Year
  Sex: Female
  Weight: 56.7 kg

DRUGS (2)
  1. PAXLOVID [Suspect]
     Active Substance: NIRMATRELVIR\RITONAVIR
     Indication: COVID-19 treatment
     Dosage: 6 DF, 2X/DAY
     Dates: start: 20240822
  2. ADVIL [Concomitant]
     Active Substance: IBUPROFEN\IBUPROFEN SODIUM
     Dosage: UNK

REACTIONS (7)
  - Ageusia [Unknown]
  - Dysgeusia [Unknown]
  - Hypoaesthesia oral [Unknown]
  - Retching [Unknown]
  - Therapeutic response unexpected [Unknown]
  - Accidental overdose [Unknown]
  - Dry mouth [Unknown]

NARRATIVE: CASE EVENT DATE: 20240801
